FAERS Safety Report 5354802-8 (Version None)
Quarter: 2007Q2

REPORT INFORMATION
  Report Type: 
  Country: None (occurrence: None)
  Receive Date: 20070611
  Receipt Date: 20070601
  Transmission Date: 20071010
  Serious: Yes (Hospitalization)
  Sender: FDA-Public Use
  Company Number: 2007BI008346

PATIENT
  Age: 42 Year
  Sex: Female

DRUGS (6)
  1. AVONEX [Suspect]
     Indication: MULTIPLE SCLEROSIS
     Dosage: 30 UG;QW;IM
     Route: 030
     Dates: start: 20050317
  2. ACIPHEX [Concomitant]
  3. ALLEGRA [Concomitant]
  4. DARVOCET-N 100 [Concomitant]
  5. COLACE [Concomitant]
  6. XANAX [Concomitant]

REACTIONS (5)
  - ADENOMYOSIS [None]
  - ENDOMETRIOSIS [None]
  - MENORRHAGIA [None]
  - PELVIC CONGESTION [None]
  - UTERINE POLYP [None]
